FAERS Safety Report 5368904-3 (Version None)
Quarter: 2007Q2

REPORT INFORMATION
  Report Type: 
  Country: None (occurrence: None)
  Receive Date: 20070625
  Receipt Date: 20070116
  Transmission Date: 20071010
  Serious: Yes (Other)
  Sender: FDA-Public Use
  Company Number: US-ASTRAZENECA-2006UW18496

PATIENT
  Age: 60 Year
  Sex: Female

DRUGS (3)
  1. CRESTOR [Suspect]
     Route: 048
     Dates: start: 20060501, end: 20060921
  2. TOPROL-XL [Concomitant]
     Route: 048
  3. ADALAT [Concomitant]

REACTIONS (1)
  - CHEST PAIN [None]
